FAERS Safety Report 12772689 (Version 1)
Quarter: 2016Q3

REPORT INFORMATION
  Report Type: Report from Study
  Country: DE (occurrence: DE)
  Receive Date: 20160922
  Receipt Date: 20160922
  Transmission Date: 20161109
  Serious: Yes (Hospitalization)
  Sender: FDA-Public Use
  Company Number: US-ASTRAZENECA-2016SF00523

PATIENT
  Sex: Male
  Weight: 1 kg

DRUGS (3)
  1. SYNAGIS [Suspect]
     Active Substance: PALIVIZUMAB
     Indication: PREMATURE BABY
     Dosage: 141 MG
     Route: 030
     Dates: start: 20101229, end: 20101229
  2. SYNAGIS [Suspect]
     Active Substance: PALIVIZUMAB
     Indication: PREMATURE BABY
     Dosage: 140 MG
     Route: 030
     Dates: start: 20101129, end: 20101129
  3. SYNAGIS [Suspect]
     Active Substance: PALIVIZUMAB
     Indication: PREMATURE BABY
     Dosage: 144 MG
     Route: 030
     Dates: start: 20110131, end: 20110131

REACTIONS (1)
  - Bronchitis [Unknown]
